FAERS Safety Report 20885459 (Version 1)
Quarter: 2022Q2

REPORT INFORMATION
  Report Type: Spontaneous
  Country: FR (occurrence: None)
  Receive Date: 20220527
  Receipt Date: 20220527
  Transmission Date: 20220721
  Serious: Yes (Hospitalization)
  Sender: FDA-Public Use
  Company Number: 2022A195238

PATIENT
  Age: 71 Year
  Sex: Female
  Weight: 52 kg

DRUGS (1)
  1. IMFINZI [Suspect]
     Active Substance: DURVALUMAB
     Indication: Neuroendocrine tumour
     Dosage: 1500.0MG EVERY CYCLE
     Route: 042
     Dates: start: 20210924, end: 20211015

REACTIONS (2)
  - Hypophysitis [Recovering/Resolving]
  - Limbic encephalitis [Recovering/Resolving]

NARRATIVE: CASE EVENT DATE: 20220308
